FAERS Safety Report 7506448-0 (Version None)
Quarter: 2011Q2

REPORT INFORMATION
  Report Type: 
  Country: None (occurrence: None)
  Receive Date: 20110526
  Receipt Date: 20110517
  Transmission Date: 20111010
  Serious: Yes (Death, Hospitalization)
  Sender: FDA-Public Use
  Company Number: US-ACTELION-A-NJ2011-47310

PATIENT

DRUGS (2)
  1. REVATIO [Concomitant]
  2. TRACLEER [Suspect]
     Indication: PULMONARY ARTERIAL HYPERTENSION
     Dosage: UNK
     Route: 048
     Dates: start: 20080903, end: 20110513

REACTIONS (7)
  - LOSS OF CONSCIOUSNESS [None]
  - DEATH [None]
  - CARDIAC ARREST [None]
  - PNEUMONIA [None]
  - OEDEMA [None]
  - FLUID OVERLOAD [None]
  - MALAISE [None]
